FAERS Safety Report 7971825-0 (Version None)
Quarter: 2011Q4

REPORT INFORMATION
  Report Type: 
  Country: None (occurrence: None)
  Receive Date: 20111212
  Receipt Date: 20111209
  Transmission Date: 20120403
  Serious: Yes (Life-Threatening, Hospitalization)
  Sender: FDA-Public Use
  Company Number: CZ-BAYER-2011-118408

PATIENT
  Age: 72 Year
  Sex: Female

DRUGS (1)
  1. ULTRAVIST 150 [Suspect]
     Dosage: 80 ML, ONCE
     Dates: start: 20111130

REACTIONS (3)
  - PALLOR [None]
  - DYSPNOEA [None]
  - HYPERHIDROSIS [None]
